FAERS Safety Report 14966939 (Version 7)
Quarter: 2018Q3

REPORT INFORMATION
  Report Type: Spontaneous
  Country: CA (occurrence: CA)
  Receive Date: 20180604
  Receipt Date: 20180907
  Transmission Date: 20181010
  Serious: Yes (Other)
  Sender: FDA-Public Use
  Company Number: CA-ORION CORPORATION ORION PHARMA-TREX2018-0970

PATIENT
  Age: 64 Year
  Sex: Female

DRUGS (8)
  1. FOLIC ACID. [Concomitant]
     Active Substance: FOLIC ACID
     Route: 065
  2. XELJANZ [Suspect]
     Active Substance: TOFACITINIB CITRATE
     Indication: RHEUMATOID ARTHRITIS
     Route: 048
     Dates: start: 20180313, end: 20180523
  3. XELJANZ [Suspect]
     Active Substance: TOFACITINIB CITRATE
     Route: 048
     Dates: start: 20180606
  4. METHOTREXATE (TRADE NAME UNKNOWN) [Suspect]
     Active Substance: METHOTREXATE
     Indication: RHEUMATOID ARTHRITIS
     Route: 048
  5. METHOTREXATE (TRADE NAME UNKNOWN) [Suspect]
     Active Substance: METHOTREXATE
     Route: 048
     Dates: end: 20180520
  6. METHOTREXATE (TRADE NAME UNKNOWN) [Suspect]
     Active Substance: METHOTREXATE
     Route: 048
     Dates: start: 20180603
  7. XELJANZ [Suspect]
     Active Substance: TOFACITINIB CITRATE
     Route: 048
     Dates: start: 20180604, end: 20180605
  8. TYLENOL ARTHRITIS PAIN [Concomitant]
     Active Substance: ACETAMINOPHEN
     Route: 065

REACTIONS (21)
  - Swelling [Not Recovered/Not Resolved]
  - Pruritus [Unknown]
  - Feeling abnormal [Unknown]
  - Flank pain [Unknown]
  - Pneumonia [Unknown]
  - Back pain [Unknown]
  - Stress [Unknown]
  - Rheumatoid arthritis [Unknown]
  - Headache [Unknown]
  - Myalgia [Unknown]
  - Pain [Unknown]
  - Drug effect incomplete [Not Recovered/Not Resolved]
  - Nausea [Unknown]
  - Hepatic pain [Unknown]
  - Erythema [Not Recovered/Not Resolved]
  - Fungal infection [Not Recovered/Not Resolved]
  - Rash [Unknown]
  - Facial pain [Unknown]
  - Pain in extremity [Unknown]
  - Chromaturia [Unknown]
  - Renal pain [Recovered/Resolved]

NARRATIVE: CASE EVENT DATE: 2018
